FAERS Safety Report 10157610 (Version 2)
Quarter: 2014Q2

REPORT INFORMATION
  Report Type: Spontaneous
  Country: US (occurrence: US)
  Receive Date: 20140507
  Receipt Date: 20140507
  Transmission Date: 20141212
  Serious: Yes (Hospitalization)
  Sender: FDA-Public Use
  Company Number: US-INCYTE CORPORATION-2014IN000451

PATIENT
  Age: 78 Year
  Sex: Male

DRUGS (2)
  1. JAKAFI [Suspect]
     Indication: MYELOFIBROSIS
     Dosage: 20 MG, BID
     Route: 048
     Dates: start: 20140204
  2. JAKAFI [Suspect]
     Dosage: 15 MG, BID
     Route: 048
     Dates: start: 20140204, end: 20140430

REACTIONS (8)
  - Movement disorder [Unknown]
  - Fall [Unknown]
  - Energy increased [Unknown]
  - Oral herpes [Unknown]
  - Headache [Recovered/Resolved]
  - Weight increased [Unknown]
  - Transfusion [Unknown]
  - Blood count abnormal [Unknown]
